FAERS Safety Report 9592951 (Version 2)
Quarter: 2013Q4

REPORT INFORMATION
  Report Type: Spontaneous
  Country: GB (occurrence: GB)
  Receive Date: 20131004
  Receipt Date: 20131004
  Transmission Date: 20140711
  Serious: Yes (Death, Hospitalization)
  Sender: FDA-Public Use
  Company Number: GB-SANOFI-AVENTIS-2012SA076139

PATIENT
  Age: 87 Year
  Sex: Female
  Weight: 58.1 kg

DRUGS (12)
  1. INDAPAMIDE [Suspect]
     Indication: BLOOD PRESSURE INCREASED
     Dosage: DOSE- 2.5 UNITS UNSPECIFIED
     Route: 048
     Dates: start: 20120702, end: 20120719
  2. ATENOLOL [Concomitant]
     Indication: HYPERTENSION
     Dosage: STARTED BEFORE 2005.
     Route: 048
     Dates: end: 20120701
  3. BENDROFLUMETHIAZIDE [Concomitant]
     Indication: HYPERTENSION
     Dosage: STARTED BEFORE 2005
     Route: 048
     Dates: end: 20120701
  4. AMIAS [Concomitant]
     Route: 048
  5. SIMVASTATIN [Concomitant]
     Route: 048
  6. HYDROCORTISONE [Concomitant]
     Indication: HYPOPITUITARISM
     Dosage: DOSE: 20MG IN THE MORNING AND 10MG AT NIGHT
  7. LEVOTHYROXINE [Concomitant]
     Indication: HYPOPITUITARISM
  8. EVOREL CONTI [Concomitant]
     Indication: HORMONE REPLACEMENT THERAPY
  9. ASPIRIN [Concomitant]
     Dosage: DOSE : 75 UNITS UNSPECIFIED.
  10. PARACETAMOL [Concomitant]
     Indication: PAIN
     Dosage: 2 TO 4 TIMES A DAY.
  11. CALCIUM CARBONATE/COLECALCIFEROL [Concomitant]
     Indication: OSTEOPOROSIS
     Dates: start: 2012
  12. STRONTIUM RANELATE [Concomitant]
     Indication: OSTEOPOROSIS
     Dosage: DOSE:2 UNITS UNSPECIFIED
     Dates: start: 2012

REACTIONS (5)
  - Gastric ulcer haemorrhage [Fatal]
  - Stevens-Johnson syndrome [Not Recovered/Not Resolved]
  - Erythema multiforme [Not Recovered/Not Resolved]
  - Hypokalaemia [Not Recovered/Not Resolved]
  - Decreased appetite [Not Recovered/Not Resolved]
